FAERS Safety Report 23228174 (Version 2)
Quarter: 2023Q4

REPORT INFORMATION
  Report Type: Report from Study
  Country: BE (occurrence: None)
  Receive Date: 20231125
  Receipt Date: 20231207
  Transmission Date: 20240110
  Serious: Yes (Hospitalization)
  Sender: FDA-Public Use
  Company Number: BE-ROCHE-3462412

PATIENT
  Age: 74 Year
  Sex: Male

DRUGS (5)
  1. ATEZOLIZUMAB [Suspect]
     Active Substance: ATEZOLIZUMAB
     Indication: Colorectal cancer metastatic
     Dosage: START DATE OF MOST RECENT DOSE 1200 MG OF ATEZOLIAUMAB PRIOR TO HEART FAILURE: 26/OCT/2023
     Route: 041
     Dates: start: 20231005
  2. ZANZALINTINIB [Suspect]
     Active Substance: ZANZALINTINIB
     Indication: Colorectal cancer metastatic
     Dosage: ON 14/NOV/2023, THE PATIENT RECEIVED THE MOST RECENT DOSE OF XL092 PRIOR TO THE ONSET OF THE EVENT.
     Route: 048
     Dates: start: 20231005
  3. ALPRAZOLAM [Concomitant]
     Active Substance: ALPRAZOLAM
     Dates: start: 20220101
  4. BILASTINE [Concomitant]
     Active Substance: BILASTINE
     Dates: start: 20000101
  5. SIMVASTATIN [Concomitant]
     Active Substance: SIMVASTATIN
     Dates: start: 20220101

REACTIONS (1)
  - Cardiac failure [Recovered/Resolved]

NARRATIVE: CASE EVENT DATE: 20231114
